FAERS Safety Report 11944580 (Version 2)
Quarter: 2016Q1

REPORT INFORMATION
  Report Type: Spontaneous
  Country: US (occurrence: US)
  Receive Date: 20160125
  Receipt Date: 20160129
  Transmission Date: 20160526
  Serious: Yes (Death, Other)
  Sender: FDA-Public Use
  Company Number: US-RECKITT BENCKISER HEALTHCARE INT LIMITED-RB-80716-2016

PATIENT
  Age: 15 Year
  Sex: Female

DRUGS (1)
  1. MUCINEX [Suspect]
     Active Substance: GUAIFENESIN
     Indication: EUPHORIC MOOD
     Dosage: TOOK SIX TO TEN TIMES THE NORMAL ADULT DOSE
     Route: 065
     Dates: start: 2015

REACTIONS (6)
  - Euphoric mood [Fatal]
  - Completed suicide [Fatal]
  - Drug abuse [Fatal]
  - Hallucination, auditory [Fatal]
  - Thinking abnormal [Fatal]
  - Intentional overdose [Fatal]

NARRATIVE: CASE EVENT DATE: 2015
